FAERS Safety Report 10235436 (Version 2)
Quarter: 2016Q3

REPORT INFORMATION
  Report Type: Spontaneous
  Country: IR (occurrence: IR)
  Receive Date: 20140613
  Receipt Date: 20160916
  Transmission Date: 20161109
  Serious: Yes (Other)
  Sender: FDA-Public Use
  Company Number: IR-MYLANLABS-2014S1013514

PATIENT

DRUGS (7)
  1. MYCOPHENOLATE MOFETIL. [Suspect]
     Active Substance: MYCOPHENOLATE MOFETIL
     Indication: IMMUNOSUPPRESSION
     Dosage: 200 MG, QD
     Route: 065
  2. PREDNISOLONE. [Suspect]
     Active Substance: PREDNISOLONE
     Dosage: 5 MG, QD
     Route: 065
  3. CICLOSPORIN [Interacting]
     Active Substance: CYCLOSPORINE
     Indication: IMMUNOSUPPRESSION
     Dosage: 6 MG/KG, UNK
     Route: 065
  4. METHYLPREDNISOLONE. [Suspect]
     Active Substance: METHYLPREDNISOLONE
     Indication: IMMUNOSUPPRESSION
     Dosage: 1000 MG, QD
     Route: 065
  5. PREDNISOLONE. [Suspect]
     Active Substance: PREDNISOLONE
     Indication: IMMUNOSUPPRESSION
     Dosage: 1 MG/KG, QD
     Route: 065
  6. CICLOSPORIN [Interacting]
     Active Substance: CYCLOSPORINE
     Dosage: 200 MG, QD (2.2 MG/KG)
     Route: 065
  7. GLIVEC [Interacting]
     Active Substance: IMATINIB MESYLATE
     Indication: CHRONIC MYELOID LEUKAEMIA
     Dosage: 200 MG, QD
     Route: 065

REACTIONS (4)
  - Chronic myeloid leukaemia [Recovering/Resolving]
  - Blood creatinine increased [Recovered/Resolved]
  - Drug interaction [Recovered/Resolved]
  - Kaposi^s sarcoma [Unknown]
